FAERS Safety Report 5675312-4 (Version None)
Quarter: 2008Q2

REPORT INFORMATION
  Report Type: 
  Country: None (occurrence: None)
  Receive Date: 20080307
  Receipt Date: 20070828
  Transmission Date: 20081010
  Serious: Yes (Death, Life-Threatening, Hospitalization)
  Sender: FDA-Public Use
  Company Number: US200708004618

PATIENT
  Age: 71 Year
  Sex: Female

DRUGS (2)
  1. GEMZAR [Suspect]
     Indication: MALIGNANT HEPATOBILIARY NEOPLASM
     Dosage: INTRAVENOUS
     Route: 042
  2. ELOXATIN [Concomitant]

REACTIONS (2)
  - ISCHAEMIC STROKE [None]
  - MALIGNANT NEOPLASM PROGRESSION [None]
